FAERS Safety Report 19380639 (Version 1)
Quarter: 2021Q2

REPORT INFORMATION
  Report Type: Spontaneous
  Country: US (occurrence: US)
  Receive Date: 20210605
  Receipt Date: 20210605
  Transmission Date: 20210717
  Serious: Yes (Other)
  Sender: FDA-Public Use
  Company Number: None

PATIENT
  Age: 52 Year
  Sex: Female
  Weight: 152 kg

DRUGS (4)
  1. MULTI VITAMIN [Concomitant]
     Active Substance: VITAMINS
  2. WIXELA INHUB [Suspect]
     Active Substance: FLUTICASONE PROPIONATE\SALMETEROL XINAFOATE
     Indication: ASTHMA
     Dosage: ?          QUANTITY:1;OTHER ROUTE:INHALATION?
     Route: 055
  3. ALBUTEROL. [Concomitant]
     Active Substance: ALBUTEROL
  4. LISINOPRIL HCTZ [Concomitant]
     Active Substance: HYDROCHLOROTHIAZIDE\LISINOPRIL

REACTIONS (11)
  - Productive cough [None]
  - Drug delivery system malfunction [None]
  - Palpitations [None]
  - Chest discomfort [None]
  - White blood cell count increased [None]
  - Ventricular extrasystoles [None]
  - Incorrect dose administered [None]
  - Pulmonary embolism [None]
  - Cold sweat [None]
  - Asthma [None]
  - Bronchitis [None]

NARRATIVE: CASE EVENT DATE: 20210501
